FAERS Safety Report 6895343-6 (Version None)
Quarter: 2010Q3

REPORT INFORMATION
  Report Type: 
  Country: None (occurrence: None)
  Receive Date: 20100708
  Receipt Date: 20090906
  Transmission Date: 20110219
  Serious: Yes (Other)
  Sender: FDA-Public Use
  Company Number: 2009267657

PATIENT
  Age: 62 Year
  Sex: Female
  Weight: 68 kg

DRUGS (1)
  1. CHANTIX [Suspect]
     Indication: SMOKING CESSATION THERAPY
     Dates: start: 20090801

REACTIONS (6)
  - ABNORMAL DREAMS [None]
  - ANGER [None]
  - ANXIETY [None]
  - NEGATIVISM [None]
  - SELF ESTEEM DECREASED [None]
  - SUICIDAL IDEATION [None]
